FAERS Safety Report 7482249-7 (Version None)
Quarter: 2011Q2

REPORT INFORMATION
  Report Type: 
  Country: None (occurrence: None)
  Receive Date: 20110516
  Receipt Date: 20110506
  Transmission Date: 20111010
  Serious: No
  Sender: FDA-Public Use
  Company Number: US-PFIZER INC-2011098307

PATIENT
  Sex: Female
  Weight: 63.492 kg

DRUGS (2)
  1. ZITHROMAX [Suspect]
     Indication: NASOPHARYNGITIS
  2. ZITHROMAX [Suspect]
     Indication: OROPHARYNGEAL PAIN
     Dosage: UNK
     Dates: start: 20110401, end: 20110505

REACTIONS (3)
  - AGEUSIA [None]
  - MALAISE [None]
  - DRUG INEFFECTIVE [None]
